FAERS Safety Report 7200026-9 (Version None)
Quarter: 2010Q4

REPORT INFORMATION
  Report Type: 
  Country: None (occurrence: None)
  Receive Date: 20101228
  Receipt Date: 20101223
  Transmission Date: 20110411
  Serious: Yes (Hospitalization, Disabling)
  Sender: FDA-Public Use
  Company Number: FR-B.I. PHARMACEUTICALS,INC./RIDGEFIELD-2010-FF-00109FF

PATIENT
  Sex: Female
  Weight: 71 kg

DRUGS (2)
  1. PRADAXA [Suspect]
     Indication: THROMBOSIS PROPHYLAXIS
     Route: 048
  2. KETOFENE [Suspect]
     Indication: PAIN
     Dosage: 300 MG
     Route: 048
     Dates: start: 20100127

REACTIONS (2)
  - DEEP VEIN THROMBOSIS [None]
  - HAEMATOMA [None]
